FAERS Safety Report 25341615 (Version 1)
Quarter: 2025Q2

REPORT INFORMATION
  Report Type: Spontaneous
  Country: PL (occurrence: PL)
  Receive Date: 20250521
  Receipt Date: 20250521
  Transmission Date: 20250716
  Serious: Yes (Death)
  Sender: CELLTRION
  Company Number: PL-CELLTRION INC.-2024PL028774

PATIENT

DRUGS (7)
  1. RITUXIMAB [Suspect]
     Active Substance: RITUXIMAB
     Indication: Epstein-Barr virus infection reactivation
  2. RITUXIMAB [Suspect]
     Active Substance: RITUXIMAB
     Indication: Peripheral T-cell lymphoma unspecified
     Route: 065
  3. RITUXIMAB [Suspect]
     Active Substance: RITUXIMAB
     Indication: Epstein-Barr virus infection
  4. CISPLATIN [Suspect]
     Active Substance: CISPLATIN
     Indication: Epstein-Barr virus infection reactivation
  5. CISPLATIN [Suspect]
     Active Substance: CISPLATIN
     Indication: Peripheral T-cell lymphoma unspecified
     Route: 065
  6. METHYLPREDNISOLONE [Concomitant]
     Active Substance: METHYLPREDNISOLONE
     Indication: Peripheral T-cell lymphoma unspecified
     Route: 042
  7. BRENTUXIMAB VEDOTIN [Concomitant]
     Active Substance: BRENTUXIMAB VEDOTIN
     Indication: Peripheral T-cell lymphoma unspecified

REACTIONS (5)
  - Peripheral T-cell lymphoma unspecified [Fatal]
  - Infection [Fatal]
  - Off label use [Fatal]
  - Off label use [Fatal]
  - Therapy non-responder [Unknown]
